FAERS Safety Report 9797536 (Version 1)
Quarter: 2014Q1

REPORT INFORMATION
  Report Type: Spontaneous
  Country: IL (occurrence: IL)
  Receive Date: 20140106
  Receipt Date: 20140106
  Transmission Date: 20141002
  Serious: Yes (Death, Congenital Anomaly)
  Sender: FDA-Public Use
  Company Number: PHHY2013IL151837

PATIENT
  Age: 21 Week
  Sex: Female

DRUGS (1)
  1. SEBIVO [Suspect]
     Indication: HEPATITIS B
     Dosage: 600 MG, 1 PER DAY
     Route: 064
     Dates: start: 201012

REACTIONS (8)
  - Death [Fatal]
  - Atrial septal defect [Unknown]
  - Ventricular internal diameter abnormal [Unknown]
  - Pulmonary valve stenosis [Unknown]
  - Low set ears [Unknown]
  - Heart disease congenital [Unknown]
  - Ear malformation [Unknown]
  - Foetal exposure during pregnancy [Unknown]
